FAERS Safety Report 16910996 (Version 1)
Quarter: 2019Q4

REPORT INFORMATION
  Report Type: Spontaneous
  Country: FR (occurrence: FR)
  Receive Date: 20191012
  Receipt Date: 20191012
  Transmission Date: 20200122
  Serious: Yes (Hospitalization)
  Sender: FDA-Public Use
  Company Number: FR-ACCORD-157338

PATIENT
  Age: 47 Year
  Sex: Female
  Weight: 76 kg

DRUGS (8)
  1. CARBOPLATIN ACCORD [Suspect]
     Active Substance: CARBOPLATIN
     Indication: OVARIAN CANCER
     Route: 042
     Dates: start: 20190814, end: 20190814
  2. RANITIDINE. [Concomitant]
     Active Substance: RANITIDINE
  3. ONDANSETRON [Concomitant]
     Active Substance: ONDANSETRON
  4. POLARAMINE [Concomitant]
     Active Substance: DEXCHLORPHENIRAMINE MALEATE
  5. SOLU-MEDROL [Concomitant]
     Active Substance: METHYLPREDNISOLONE SODIUM SUCCINATE
  6. INNOHEP [Concomitant]
     Active Substance: TINZAPARIN SODIUM
  7. PACLITAXEL ACCORD [Suspect]
     Active Substance: PACLITAXEL
     Indication: OVARIAN CANCER
     Dosage: 6 MG / ML
     Route: 042
     Dates: start: 20190814, end: 20190814
  8. VARUBY [Concomitant]
     Active Substance: ROLAPITANT

REACTIONS (3)
  - Oxygen saturation decreased [Recovered/Resolved]
  - Hypersensitivity [Recovered/Resolved]
  - Loss of consciousness [Recovered/Resolved]

NARRATIVE: CASE EVENT DATE: 20190814
